FAERS Safety Report 14096979 (Version 1)
Quarter: 2017Q4

REPORT INFORMATION
  Report Type: Spontaneous
  Country: US (occurrence: None)
  Receive Date: 20171016
  Receipt Date: 20171016
  Transmission Date: 20180321
  Serious: Yes (Hospitalization)
  Sender: FDA-Public Use
  Company Number: None

PATIENT
  Age: 67 Year
  Sex: Male

DRUGS (1)
  1. AMITRIPTYLINE [Suspect]
     Active Substance: AMITRIPTYLINE
     Indication: PRURITUS
     Route: 048
     Dates: start: 20170414, end: 20170627

REACTIONS (6)
  - Dysarthria [None]
  - Dyskinesia [None]
  - Asthenia [None]
  - Toxicity to various agents [None]
  - Ataxia [None]
  - Somnolence [None]

NARRATIVE: CASE EVENT DATE: 20170624
